FAERS Safety Report 7643491-5 (Version None)
Quarter: 2011Q3

REPORT INFORMATION
  Report Type: 
  Country: None (occurrence: None)
  Receive Date: 20110729
  Receipt Date: 20110721
  Transmission Date: 20111222
  Serious: Yes (Other)
  Sender: FDA-Public Use
  Company Number: US-BAYER-2010-007011

PATIENT
  Age: 25 Year
  Sex: Female

DRUGS (4)
  1. YASMIN [Suspect]
     Dosage: UNK
     Dates: start: 20050101, end: 20080101
  2. NEXIUM [Concomitant]
     Dosage: 40 MG, UNK
     Route: 048
  3. PREVACID [Concomitant]
     Dosage: 30 MG, QD
     Route: 048
  4. METFORMIN HCL [Concomitant]
     Indication: POLYCYSTIC OVARIES
     Dosage: UNK UNK, BID
     Route: 048

REACTIONS (3)
  - INJURY [None]
  - CHOLECYSTITIS CHRONIC [None]
  - PAIN [None]
